FAERS Safety Report 9588159 (Version 1)
Quarter: 2013Q4

REPORT INFORMATION
  Report Type: Spontaneous
  Country: US (occurrence: US)
  Receive Date: 20131003
  Receipt Date: 20131003
  Transmission Date: 20140711
  Serious: No
  Sender: FDA-Public Use
  Company Number: US-AMGEN-USASP2012067952

PATIENT
  Age: 33 Year
  Sex: Female
  Weight: 72.56 kg

DRUGS (4)
  1. ENBREL [Suspect]
     Indication: POLYARTHRITIS
     Dosage: 50 MG, QWK
     Route: 058
  2. METHOTREXATE [Concomitant]
     Dosage: 2.5 MG, UNK
     Route: 048
  3. ADVIL                              /00044201/ [Concomitant]
     Dosage: 200 MG, UNK
     Route: 048
  4. IBUPROFEN [Concomitant]
     Dosage: 200 MG, UNK
     Route: 048

REACTIONS (2)
  - Pallor [Unknown]
  - Dizziness [Unknown]
